FAERS Safety Report 9333812 (Version 1)
Quarter: 2013Q2

REPORT INFORMATION
  Report Type: Spontaneous
  Country: US (occurrence: US)
  Receive Date: 20130606
  Receipt Date: 20130606
  Transmission Date: 20140414
  Serious: No
  Sender: FDA-Public Use
  Company Number: US-AMGEN-USASP2013005681

PATIENT
  Sex: Male

DRUGS (2)
  1. XGEVA [Suspect]
     Indication: PROSTATE CANCER
  2. PROVENGE [Concomitant]

REACTIONS (1)
  - Hypocalcaemia [Unknown]
